FAERS Safety Report 22226155 (Version 1)
Quarter: 2023Q2

REPORT INFORMATION
  Report Type: Spontaneous
  Country: US (occurrence: None)
  Receive Date: 20230419
  Receipt Date: 20230419
  Transmission Date: 20230722
  Serious: No
  Sender: FDA-Public Use
  Company Number: 2023A078966

PATIENT

DRUGS (1)
  1. PULMICORT FLEXHALER [Suspect]
     Active Substance: BUDESONIDE
     Indication: Pneumonia
     Route: 055

REACTIONS (6)
  - Wheezing [Unknown]
  - Seasonal allergy [Unknown]
  - Off label use [Unknown]
  - Device malfunction [Unknown]
  - Intentional product misuse [Unknown]
  - Product dose omission issue [Unknown]
